FAERS Safety Report 4642696-5 (Version None)
Quarter: 2005Q2

REPORT INFORMATION
  Report Type: 
  Country: None (occurrence: None)
  Receive Date: 20050420
  Receipt Date: 20050330
  Transmission Date: 20051028
  Serious: Yes (Hospitalization)
  Sender: FDA-Public Use
  Company Number: 800297

PATIENT
  Sex: 0

DRUGS (2)
  1. DIANEAL [Suspect]
     Indication: PERITONEAL DIALYSIS
     Dates: start: 20050201
  2. UV-FLASH [Concomitant]

REACTIONS (3)
  - EOSINOPHILIA [None]
  - UNEVALUABLE EVENT [None]
  - WHITE BLOOD CELL COUNT DECREASED [None]
